FAERS Safety Report 4811725-8 (Version None)
Quarter: 2005Q4

REPORT INFORMATION
  Report Type: 
  Country: None (occurrence: None)
  Receive Date: 20051025
  Receipt Date: 20051011
  Transmission Date: 20060501
  Serious: Yes (Other)
  Sender: FDA-Public Use
  Company Number: 218622

PATIENT
  Age: 70 Year
  Sex: Male
  Weight: 50 kg

DRUGS (15)
  1. RITUXAN [Suspect]
     Indication: NON-HODGKIN'S LYMPHOMA
     Dosage: 530 MG, INTRAVENOUS
     Route: 042
     Dates: start: 20011005, end: 20020318
  2. CYCLOPHOSPHAMIDE [Suspect]
     Indication: NON-HODGKIN'S LYMPHOMA
     Dosage: 500 MG,
     Dates: start: 20011012, end: 20011211
  3. DOXORUBICIN HYDROCHLORIDE [Suspect]
     Indication: NON-HODGKIN'S LYMPHOMA
     Dosage: 30 MG,
     Dates: start: 20011012, end: 20011211
  4. VINCRISTINE SULFATE [Suspect]
     Indication: NON-HODGKIN'S LYMPHOMA
     Dosage: 1 MG,
     Dates: start: 20011012, end: 20011211
  5. PREDNISOLONE ACETATE [Suspect]
     Indication: NON-HODGKIN'S LYMPHOMA
     Dosage: 50 MG,
     Dates: start: 20011012, end: 20011213
  6. DEXAMETHASONE SODIUM PHOSPHATE [Suspect]
     Indication: NON-HODGKIN'S LYMPHOMA
     Dosage: 20 MG,
     Dates: start: 20020319, end: 20020321
  7. GRANISETRON  HCL [Suspect]
     Indication: NON-HODGKIN'S LYMPHOMA
     Dosage: 3 MG,
     Dates: start: 20011012, end: 20020321
  8. AMIKACIN SULFATE [Suspect]
     Dates: start: 20011224, end: 20020117
  9. AMPHOTERICIN B [Suspect]
     Dates: start: 20011230, end: 20020108
  10. CEFTAZIDIME SODIUM [Concomitant]
  11. PANIPENEM (PANIPENEM) [Concomitant]
  12. BETAMIPRON (BETAMIPRON) [Concomitant]
  13. LENOGRASTIM (LENOGRASTIM) [Concomitant]
  14. ACETAMINOPHEN [Concomitant]
  15. CHLORPHENIRAMINE MALEATE [Concomitant]

REACTIONS (12)
  - ABDOMINAL PAIN [None]
  - BLOOD LACTATE DEHYDROGENASE INCREASED [None]
  - COUGH [None]
  - HAEMOGLOBIN DECREASED [None]
  - HYPOKALAEMIA [None]
  - NEUTROPHIL PERCENTAGE DECREASED [None]
  - PLATELET COUNT DECREASED [None]
  - PLEURISY [None]
  - PYREXIA [None]
  - RED BLOOD CELL COUNT DECREASED [None]
  - RENAL FAILURE [None]
  - WHITE BLOOD CELL COUNT DECREASED [None]
